FAERS Safety Report 10062633 (Version 2)
Quarter: 2014Q2

REPORT INFORMATION
  Report Type: Spontaneous
  Country: US (occurrence: US)
  Receive Date: 20140407
  Receipt Date: 20140513
  Transmission Date: 20141212
  Serious: Yes (Other)
  Sender: FDA-Public Use
  Company Number: US-TEVA-473511USA

PATIENT
  Age: 36 Year
  Sex: Female
  Weight: 70.37 kg

DRUGS (2)
  1. PARAGARD 380A [Suspect]
     Indication: CONTRACEPTION
     Route: 015
     Dates: start: 200910, end: 20140404
  2. PARAGARD 380A [Suspect]
     Route: 015
     Dates: start: 20140404

REACTIONS (6)
  - Device dislocation [Recovered/Resolved]
  - Embedded device [Recovered/Resolved]
  - Device breakage [Recovered/Resolved]
  - Vaginal haemorrhage [Unknown]
  - Vaginal discharge [Unknown]
  - Pelvic pain [Unknown]
